FAERS Safety Report 6077893-8 (Version None)
Quarter: 2009Q1

REPORT INFORMATION
  Report Type: 
  Country: None (occurrence: None)
  Receive Date: 20090213
  Receipt Date: 20090202
  Transmission Date: 20090719
  Serious: Yes (Other)
  Sender: FDA-Public Use
  Company Number: US-PFIZER INC-2009167035

PATIENT
  Sex: Female
  Weight: 65.76 kg

DRUGS (8)
  1. CHANTIX [Suspect]
     Dosage: 0.5 MG, 2X/DAY
     Dates: start: 20090125, end: 20090202
  2. TOPAMAX [Concomitant]
     Dosage: UNK
  3. OMEPRAZOLE [Concomitant]
     Dosage: UNK
  4. ABILIFY [Concomitant]
     Dosage: UNK
  5. BENZATROPINE [Concomitant]
     Dosage: UNK
  6. HALDOL [Concomitant]
     Dosage: UNK
  7. ATENOLOL [Concomitant]
     Dosage: UNK
  8. FEXOFENADINE [Concomitant]
     Dosage: UNK

REACTIONS (1)
  - DEPRESSION [None]
